FAERS Safety Report 19672457 (Version 1)
Quarter: 2021Q3

REPORT INFORMATION
  Report Type: Report from Study
  Country: CA (occurrence: CA)
  Receive Date: 20210808
  Receipt Date: 20210808
  Transmission Date: 20211014
  Serious: Yes (Death)
  Sender: FDA-Public Use
  Company Number: CA-BEH-2021134506

PATIENT
  Age: 77 Year
  Sex: Male
  Weight: 77.1 kg

DRUGS (1)
  1. HIZENTRA [Suspect]
     Active Substance: HUMAN IMMUNOGLOBULIN G
     Indication: SECONDARY IMMUNODEFICIENCY
     Dosage: 12 GRAM, QW
     Route: 058
     Dates: start: 20151111, end: 20210720

REACTIONS (1)
  - Death [Fatal]

NARRATIVE: CASE EVENT DATE: 20210721
